FAERS Safety Report 23021750 (Version 1)
Quarter: 2023Q4

REPORT INFORMATION
  Report Type: Spontaneous
  Country: US (occurrence: US)
  Receive Date: 20231003
  Receipt Date: 20231003
  Transmission Date: 20240110
  Serious: Yes (Hospitalization)
  Sender: FDA-Public Use
  Company Number: US-UPSHER-SMITH LABORATORIES, LLC-2023USL00828

PATIENT
  Age: 41 Year
  Sex: Male

DRUGS (4)
  1. CHLORPROMAZINE HYDROCHLORIDE [Suspect]
     Active Substance: CHLORPROMAZINE HYDROCHLORIDE
     Dosage: UNK
  2. LITHIUM [Concomitant]
     Active Substance: LITHIUM
  3. PALIPERIDONE [Concomitant]
     Active Substance: PALIPERIDONE
     Dosage: LONG-ACTING
  4. CLONAZEPAM [Concomitant]
     Active Substance: CLONAZEPAM

REACTIONS (1)
  - Intestinal obstruction [Recovering/Resolving]
